FAERS Safety Report 16717988 (Version 3)
Quarter: 2020Q1

REPORT INFORMATION
  Report Type: Spontaneous
  Country: JP (occurrence: JP)
  Receive Date: 20190819
  Receipt Date: 20200120
  Transmission Date: 20200409
  Serious: Yes (Other)
  Sender: FDA-Public Use
  Company Number: PHJP2019JP010563

PATIENT
  Age: 22 Year
  Sex: Male

DRUGS (8)
  1. ANTITHYMOCYTE IMMUNOGLOBULIN (HORSE) [Concomitant]
     Active Substance: EQUINE THYMOCYTE IMMUNE GLOBULIN
     Indication: APLASTIC ANAEMIA
     Dosage: UNK
     Route: 065
  2. ELTROMBOPAG [Suspect]
     Active Substance: ELTROMBOPAG
     Dosage: 50 MG, UNK
     Route: 048
  3. ELTROMBOPAG [Suspect]
     Active Substance: ELTROMBOPAG
     Dosage: 75 MG, QD
     Route: 048
  4. ELTROMBOPAG [Suspect]
     Active Substance: ELTROMBOPAG
     Dosage: 100 MG, QD
     Route: 048
  5. ELTROMBOPAG [Suspect]
     Active Substance: ELTROMBOPAG
     Dosage: 50 MG, QD
     Route: 048
  6. CICLOSPORIN [Suspect]
     Active Substance: CYCLOSPORINE
     Indication: APLASTIC ANAEMIA
     Dosage: UNK
     Route: 048
  7. CICLOSPORIN [Suspect]
     Active Substance: CYCLOSPORINE
     Dosage: UNK
     Route: 048
  8. ELTROMBOPAG [Suspect]
     Active Substance: ELTROMBOPAG
     Indication: APLASTIC ANAEMIA
     Dosage: 25 MG, QD
     Route: 048

REACTIONS (5)
  - Disease progression [Unknown]
  - Therapeutic product effect incomplete [Unknown]
  - Platelet count decreased [Unknown]
  - Aplastic anaemia [Unknown]
  - Neutrophil count decreased [Unknown]
